FAERS Safety Report 6376475-8 (Version None)
Quarter: 2009Q3

REPORT INFORMATION
  Report Type: 
  Country: None (occurrence: None)
  Receive Date: 20090921
  Receipt Date: 20090827
  Transmission Date: 20100115
  Serious: Yes (Hospitalization)
  Sender: FDA-Public Use
  Company Number: PAL-0015-2009

PATIENT
  Age: 59 Year
  Sex: Male

DRUGS (5)
  1. ANTIZOL [Suspect]
     Indication: ALCOHOL POISONING
     Dosage: SEE IMAGE
     Route: 042
  2. ANTIZOL [Suspect]
     Indication: ALCOHOL POISONING
     Dosage: SEE IMAGE
     Route: 042
  3. LOREZEPAM [Concomitant]
  4. MORPHINE [Concomitant]
  5. SODIUM CHLORIDE [Concomitant]

REACTIONS (3)
  - BRADYCARDIA [None]
  - COMA [None]
  - HYPOTENSION [None]
